FAERS Safety Report 24857074 (Version 5)
Quarter: 2025Q2

REPORT INFORMATION
  Report Type: Report from Study
  Country: US (occurrence: US)
  Receive Date: 20250117
  Receipt Date: 20250414
  Transmission Date: 20250716
  Serious: Yes (Hospitalization)
  Sender: ALNYLAM PHARMACEUTICALS
  Company Number: US-ALNYLAM PHARMACEUTICALS, INC.-ALN-2025-000055

PATIENT

DRUGS (1)
  1. OXLUMO [Suspect]
     Active Substance: LUMASIRAN
     Indication: Product used for unknown indication
     Dosage: 3 MILLIGRAM/KILOGRAM (94.5 MG/0.5 ML VIAL) (363 MILLIGRAM/1.92 MILLILITER), Q3M
     Route: 058
     Dates: start: 20240128, end: 20240128

REACTIONS (3)
  - Nephrolithiasis [Not Recovered/Not Resolved]
  - Gastrointestinal infection [Unknown]
  - Weight increased [Unknown]

NARRATIVE: CASE EVENT DATE: 20241228
